FAERS Safety Report 15754323 (Version 1)
Quarter: 2018Q4

REPORT INFORMATION
  Report Type: Spontaneous
  Country: US (occurrence: US)
  Receive Date: 20181223
  Receipt Date: 20181223
  Transmission Date: 20190205
  Serious: No
  Sender: FDA-Public Use
  Company Number: US-ASTRAZENECA-2018SF61642

PATIENT
  Sex: Female

DRUGS (2)
  1. METFORMIN [Concomitant]
     Active Substance: METFORMIN HYDROCHLORIDE
  2. BYETTA [Suspect]
     Active Substance: EXENATIDE
     Route: 058

REACTIONS (5)
  - Intentional product misuse [Recovered/Resolved]
  - Weight increased [Not Recovered/Not Resolved]
  - Appetite disorder [Unknown]
  - Food craving [Unknown]
  - Blood glucose increased [Not Recovered/Not Resolved]
